FAERS Safety Report 6517422-5 (Version None)
Quarter: 2009Q4

REPORT INFORMATION
  Report Type: 
  Country: None (occurrence: None)
  Receive Date: 20091224
  Receipt Date: 20091216
  Transmission Date: 20100525
  Serious: Yes (Death)
  Sender: FDA-Public Use
  Company Number: US-BIOGENIDEC-2009BI040947

PATIENT
  Age: 44 Year
  Sex: Female

DRUGS (2)
  1. TYSABRI [Suspect]
     Indication: MULTIPLE SCLEROSIS
     Route: 042
     Dates: start: 20090901, end: 20091201
  2. METOPROLOL TARTRATE [Concomitant]
     Indication: HYPERTENSION

REACTIONS (3)
  - CARDIAC ARREST [None]
  - MUSCLE SPASMS [None]
  - UPPER RESPIRATORY TRACT INFECTION [None]
